FAERS Safety Report 4869031-1 (Version None)
Quarter: 2005Q4

REPORT INFORMATION
  Report Type: 
  Country: None (occurrence: None)
  Receive Date: 20051223
  Receipt Date: 20051221
  Transmission Date: 20060501
  Serious: Yes (Hospitalization)
  Sender: FDA-Public Use
  Company Number: 2005-04912

PATIENT
  Age: 35 Year
  Sex: Female

DRUGS (3)
  1. TRELSTAR DEPOT [Suspect]
     Indication: UTERINE LEIOMYOMA
     Dosage: INTRAMUSCULAR
     Route: 030
     Dates: start: 20050725, end: 20051025
  2. DUPHASTON [Concomitant]
  3. MEDROL [Concomitant]

REACTIONS (5)
  - COLOUR BLINDNESS [None]
  - DRUG ADMINISTRATION ERROR [None]
  - INTRACRANIAL PRESSURE INCREASED [None]
  - PAPILLOEDEMA [None]
  - VISION BLURRED [None]
